FAERS Safety Report 5943149-4 (Version None)
Quarter: 2008Q4

REPORT INFORMATION
  Report Type: 
  Country: None (occurrence: None)
  Receive Date: 20081105
  Receipt Date: 20081105
  Transmission Date: 20090506
  Serious: Yes (Hospitalization)
  Sender: FDA-Public Use
  Company Number: None

PATIENT
  Age: 56 Year
  Sex: Female
  Weight: 70.3075 kg

DRUGS (1)
  1. SOLIRIS [Suspect]
     Indication: HAEMOGLOBINAEMIA
     Dosage: 900MG EVERY 14 DAYS IV
     Route: 042
     Dates: start: 20070601, end: 20081001

REACTIONS (4)
  - BODY TEMPERATURE INCREASED [None]
  - DIARRHOEA [None]
  - NAUSEA [None]
  - VOMITING [None]
